FAERS Safety Report 7375261-X (Version None)
Quarter: 2011Q1

REPORT INFORMATION
  Report Type: 
  Country: None (occurrence: None)
  Receive Date: 20110325
  Receipt Date: 20110322
  Transmission Date: 20110831
  Serious: Yes (Other)
  Sender: FDA-Public Use
  Company Number: JP-PFIZER INC-2011034721

PATIENT
  Age: 61 Year
  Sex: Male
  Weight: 40.4 kg

DRUGS (9)
  1. ZITHROMAX [Suspect]
     Indication: PNEUMONIA ASPIRATION
     Dosage: 2 G, SINGLE
     Route: 048
     Dates: start: 20110210, end: 20110210
  2. RISPERDAL [Concomitant]
     Indication: HALLUCINATION
     Dosage: 4 MG, 1X/DAY
     Route: 048
     Dates: start: 20101123
  3. LORAZEPAM [Concomitant]
     Indication: DELUSION
  4. RISPERDAL [Concomitant]
     Indication: DELUSION
  5. LEVOMEPROMAZINE [Concomitant]
     Indication: DELUSION
     Dosage: UNK
  6. SEROQUEL [Concomitant]
     Indication: HALLUCINATION
     Dosage: 200 MG, 1X/DAY
     Dates: start: 20101123
  7. LEVOMEPROMAZINE [Concomitant]
     Indication: HALLUCINATION
     Dosage: 33 MG, 3X/DAY
     Route: 048
     Dates: start: 20101123
  8. LORAZEPAM [Concomitant]
     Indication: HALLUCINATION
     Dosage: 1 MG, 3X/DAY
     Route: 048
     Dates: start: 20101123
  9. SEROQUEL [Concomitant]
     Indication: DELUSION

REACTIONS (1)
  - SHOCK [None]
